FAERS Safety Report 10213356 (Version 1)
Quarter: 2014Q2

REPORT INFORMATION
  Report Type: Spontaneous
  Country: DE (occurrence: None)
  Receive Date: 20140529
  Receipt Date: 20140529
  Transmission Date: 20141212
  Serious: Yes (Death, Congenital Anomaly, Other)
  Sender: FDA-Public Use
  Company Number: DE-015746

PATIENT
  Age: 28 Day
  Sex: Male
  Weight: 1.3 kg

DRUGS (1)
  1. PROGESTERON (PROGESTERON) [Suspect]
     Indication: ABORTION THREATENED
     Route: 064
     Dates: start: 20111216

REACTIONS (10)
  - Polyhydramnios [None]
  - Single umbilical artery [None]
  - Caesarean section [None]
  - Anal atresia [None]
  - Oesophageal atresia [None]
  - Congenital cardiovascular anomaly [None]
  - Renal failure [None]
  - Multi-organ failure [None]
  - Cerebral haemorrhage [None]
  - Maternal drugs affecting foetus [None]
